FAERS Safety Report 12612657 (Version 1)
Quarter: 2016Q3

REPORT INFORMATION
  Report Type: Spontaneous
  Country: US (occurrence: US)
  Receive Date: 20160801
  Receipt Date: 20160801
  Transmission Date: 20161109
  Serious: No
  Sender: FDA-Public Use
  Company Number: GXBR2016US001794

PATIENT
  Sex: Female

DRUGS (4)
  1. ESTROGEN [Concomitant]
     Active Substance: ESTRONE\SUS SCROFA OVARY
     Indication: INFERTILITY FEMALE
     Dosage: UNK DF, UNK
     Route: 065
  2. LEUPROLIDE ACETATE. [Suspect]
     Active Substance: LEUPROLIDE ACETATE
     Indication: INFERTILITY FEMALE
     Dosage: 0.2 ML, QD
     Route: 058
  3. LEUPROLIDE ACETATE. [Suspect]
     Active Substance: LEUPROLIDE ACETATE
     Dosage: 1 ML, ONCE/SINGLE
     Route: 030
  4. PROGESTERONE. [Concomitant]
     Active Substance: PROGESTERONE
     Indication: INFERTILITY FEMALE
     Dosage: 1 ML, UNK
     Route: 030

REACTIONS (2)
  - Drug administration error [Not Recovered/Not Resolved]
  - Off label use [Not Recovered/Not Resolved]
